FAERS Safety Report 9914853 (Version 3)
Quarter: 2014Q1

REPORT INFORMATION
  Report Type: Spontaneous
  Country: US (occurrence: US)
  Receive Date: 20140220
  Receipt Date: 20140321
  Transmission Date: 20141002
  Serious: Yes (Death)
  Sender: FDA-Public Use
  Company Number: US-EISAI INC-AP356-00462-SPO-US

PATIENT
  Age: 47 Year
  Sex: Male
  Weight: 118.18 kg

DRUGS (10)
  1. BELVIQ (LORCASERIN HYDROCHLORIDE) [Suspect]
     Indication: OBESITY
     Route: 048
     Dates: start: 20140204
  2. METFORMIN [Concomitant]
     Route: 048
  3. LANTUS [Concomitant]
     Dosage: 5O UNITS DAILY AT BEDTIME
     Route: 058
  4. LEVOTHYROXINE [Concomitant]
     Route: 048
  5. ASPIRIN [Concomitant]
     Route: 048
  6. LIPITOR [Concomitant]
     Route: 048
  7. VICTOZA [Concomitant]
     Route: 058
  8. GLIMEPIRIDE [Concomitant]
     Route: 048
  9. PANTOPRAZOLE [Concomitant]
     Dosage: UNKNOWN
  10. ACIPHEX [Concomitant]
     Route: 048

REACTIONS (1)
  - Hepatorenal syndrome [Fatal]
